FAERS Safety Report 16886800 (Version 2)
Quarter: 2021Q1

REPORT INFORMATION
  Report Type: Report from Study
  Country: US (occurrence: US)
  Receive Date: 20191004
  Receipt Date: 20210215
  Transmission Date: 20210419
  Serious: No
  Sender: FDA-Public Use
  Company Number: US-SHIRE-US201932130

PATIENT
  Sex: Male

DRUGS (4)
  1. OXICAM [Concomitant]
     Active Substance: PIROXICAM
     Indication: PRODUCT USED FOR UNKNOWN INDICATION
  2. IBUPROFEN. [Concomitant]
     Active Substance: IBUPROFEN
     Indication: PRODUCT USED FOR UNKNOWN INDICATION
  3. GAMUNEX [Concomitant]
     Active Substance: HUMAN IMMUNOGLOBULIN G
     Indication: PRODUCT USED FOR UNKNOWN INDICATION
  4. HUMAN NORMAL IMMUNOGLOBULIN; LIQUID [Suspect]
     Active Substance: HUMAN IMMUNOGLOBULIN G
     Indication: MULTIFOCAL MOTOR NEUROPATHY
     Dosage: 50 GRAM, 1/WEEK
     Route: 065
     Dates: start: 2008

REACTIONS (14)
  - Paresis [Unknown]
  - Malaise [Unknown]
  - Muscle spasms [Unknown]
  - Pyrexia [Unknown]
  - Underdose [Unknown]
  - Nausea [Unknown]
  - Headache [Unknown]
  - Illness [Unknown]
  - Inability to afford medication [Unknown]
  - Nasopharyngitis [Unknown]
  - Overdose [Unknown]
  - Inappropriate schedule of product administration [Unknown]
  - Myalgia [Unknown]
  - Muscle twitching [Unknown]
